FAERS Safety Report 9888684 (Version 1)
Quarter: 2014Q1

REPORT INFORMATION
  Report Type: Spontaneous
  Country: US (occurrence: None)
  Receive Date: 20140210
  Receipt Date: 20140210
  Transmission Date: 20141002
  Serious: Yes (Life-Threatening, Hospitalization, Disabling)
  Sender: FDA-Public Use
  Company Number: None

PATIENT
  Age: 52 Year
  Sex: Male
  Weight: 72.12 kg

DRUGS (1)
  1. TESTOSTERONE CYPIONATE [Suspect]

REACTIONS (2)
  - Thrombosis [None]
  - Myocardial infarction [None]
